FAERS Safety Report 20667841 (Version 1)
Quarter: 2022Q2

REPORT INFORMATION
  Report Type: Spontaneous
  Country: US (occurrence: US)
  Receive Date: 20220404
  Receipt Date: 20220404
  Transmission Date: 20220721
  Serious: Yes (Other)
  Sender: FDA-Public Use
  Company Number: US-AMGEN-USASP2022057428

PATIENT

DRUGS (1)
  1. EPOGEN [Suspect]
     Active Substance: ERYTHROPOIETIN
     Indication: Anaemia prophylaxis
     Route: 065

REACTIONS (8)
  - Procedural complication [Unknown]
  - Wound dehiscence [Unknown]
  - Post procedural infection [Unknown]
  - Postoperative ileus [Unknown]
  - Acute kidney injury [Unknown]
  - Postoperative respiratory failure [Unknown]
  - Myotonic dystrophy [Unknown]
  - Anaemia [Unknown]
